FAERS Safety Report 16361077 (Version 1)
Quarter: 2019Q2

REPORT INFORMATION
  Report Type: Spontaneous
  Country: BE (occurrence: BE)
  Receive Date: 20190528
  Receipt Date: 20190528
  Transmission Date: 20190711
  Serious: Yes (Hospitalization, Other)
  Sender: FDA-Public Use
  Company Number: BE-SA-2019SA145006

PATIENT
  Age: 73 Year
  Sex: Male

DRUGS (1)
  1. RENVELA [Suspect]
     Active Substance: SEVELAMER CARBONATE
     Indication: HYPERPHOSPHATAEMIA
     Dosage: 1600 MG, QD (2X800MG)

REACTIONS (6)
  - Large intestinal ulcer [Recovering/Resolving]
  - Abdominal pain lower [Recovering/Resolving]
  - Gastrointestinal inflammation [Recovering/Resolving]
  - Gastrointestinal ulcer [Recovering/Resolving]
  - Irritable bowel syndrome [Recovering/Resolving]
  - Crystal deposit intestine [Recovered/Resolved]
